FAERS Safety Report 5973506-1 (Version None)
Quarter: 2008Q4

REPORT INFORMATION
  Report Type: 
  Country: None (occurrence: None)
  Receive Date: 20081201
  Receipt Date: 20081117
  Transmission Date: 20090506
  Serious: Yes (Hospitalization)
  Sender: FDA-Public Use
  Company Number: IN-AVENTIS-200816306EU

PATIENT
  Age: 55 Year
  Sex: Male

DRUGS (1)
  1. CLEXANE [Suspect]
     Route: 042

REACTIONS (1)
  - VENTRICULAR TACHYCARDIA [None]
